FAERS Safety Report 7055074-9 (Version None)
Quarter: 2010Q4

REPORT INFORMATION
  Report Type: 
  Country: None (occurrence: None)
  Receive Date: 20101021
  Receipt Date: 20100920
  Transmission Date: 20110411
  Serious: No
  Sender: FDA-Public Use
  Company Number: US-BAYER-201034256NA

PATIENT
  Sex: Female

DRUGS (5)
  1. BETASERON [Suspect]
     Indication: MULTIPLE SCLEROSIS
     Route: 058
  2. AVONEX [Concomitant]
     Indication: MULTIPLE SCLEROSIS
  3. REBIF [Concomitant]
     Indication: MULTIPLE SCLEROSIS
  4. COPAXONE [Concomitant]
     Indication: MULTIPLE SCLEROSIS
  5. AMPYRA [Concomitant]

REACTIONS (1)
  - MULTIPLE SCLEROSIS [None]
